FAERS Safety Report 5105681-5 (Version None)
Quarter: 2006Q3

REPORT INFORMATION
  Report Type: 
  Country: None (occurrence: None)
  Receive Date: 20060915
  Receipt Date: 20060616
  Transmission Date: 20061208
  Serious: Yes (Life-Threatening, Other)
  Sender: FDA-Public Use
  Company Number: 2006CG01163

PATIENT
  Age: 10574 Day
  Sex: Female
  Weight: 88 kg

DRUGS (2)
  1. XYLOCAINE [Suspect]
     Indication: EPIDURAL ANAESTHESIA
     Route: 008
     Dates: start: 20060616, end: 20060616
  2. NAROPIN [Suspect]
     Indication: EPIDURAL ANAESTHESIA
     Route: 008
     Dates: start: 20060616, end: 20060616

REACTIONS (4)
  - ANAESTHETIC COMPLICATION [None]
  - HYPOTENSION [None]
  - PARAESTHESIA [None]
  - RESPIRATORY DISORDER [None]
